FAERS Safety Report 22176941 (Version 1)
Quarter: 2023Q2

REPORT INFORMATION
  Report Type: Report from Study
  Country: US (occurrence: US)
  Receive Date: 20230405
  Receipt Date: 20230405
  Transmission Date: 20230722
  Serious: Yes (Other)
  Sender: FDA-Public Use
  Company Number: US-LEO Pharma-350914

PATIENT
  Sex: Male

DRUGS (2)
  1. ADBRY [Suspect]
     Active Substance: TRALOKINUMAB-LDRM
     Indication: Dermatitis atopic
  2. DEVICE [Suspect]
     Active Substance: DEVICE
     Indication: Dermatitis atopic

REACTIONS (6)
  - Dizziness [Unknown]
  - Dyspnoea [Unknown]
  - Dizziness [Unknown]
  - Throat tightness [Unknown]
  - Chest discomfort [Unknown]
  - Vision blurred [Unknown]
